FAERS Safety Report 16982199 (Version 1)
Quarter: 2019Q4

REPORT INFORMATION
  Report Type: Spontaneous
  Country: FR (occurrence: FR)
  Receive Date: 20191101
  Receipt Date: 20191101
  Transmission Date: 20200122
  Serious: Yes (Hospitalization)
  Sender: FDA-Public Use
  Company Number: FR-TEVA-2019-FR-1129925

PATIENT
  Age: 13 Year
  Sex: Male

DRUGS (7)
  1. DESFERAL [Suspect]
     Active Substance: DEFEROXAMINE MESYLATE
     Indication: IRON OVERLOAD
     Dosage: 2000 MG
     Route: 058
     Dates: start: 20180821, end: 20190816
  2. SPECIAFOLDINE 5 MG, COMPRIM? [Concomitant]
     Active Substance: FOLIC ACID
     Dosage: 1 DOSAGE FORMS
     Route: 048
  3. SIKLOS [Suspect]
     Active Substance: HYDROXYUREA
     Indication: THALASSAEMIA BETA
     Dosage: 600 MG
     Route: 048
     Dates: start: 2017, end: 20190816
  4. FERRIPROX [Suspect]
     Active Substance: DEFERIPRONE
     Indication: IRON OVERLOAD
     Dosage: 3000 MG
     Route: 048
     Dates: start: 20181221, end: 20190816
  5. AMOXICILLINE [Suspect]
     Active Substance: AMOXICILLIN
     Indication: TONSILLITIS STREPTOCOCCAL
     Dosage: 1500 MG
     Route: 048
     Dates: start: 20190618, end: 20190816
  6. ORACILLINE 1 000 000 UI, COMPRIM? S?CABLE [Concomitant]
     Active Substance: PENICILLIN V BENZATHINE
     Dosage: 2 DOSAGE FORMS
     Route: 048
     Dates: start: 20190618
  7. EXJADE [Suspect]
     Active Substance: DEFERASIROX
     Indication: IRON OVERLOAD
     Dosage: 720 MG
     Route: 048
     Dates: start: 2017, end: 20190816

REACTIONS (2)
  - Abdominal pain [Not Recovered/Not Resolved]
  - Transaminases increased [Recovering/Resolving]

NARRATIVE: CASE EVENT DATE: 20190810
